FAERS Safety Report 4737946-0 (Version None)
Quarter: 2005Q3

REPORT INFORMATION
  Report Type: 
  Country: None (occurrence: None)
  Receive Date: 20050805
  Receipt Date: 20050805
  Transmission Date: 20060218
  Serious: Yes (Hospitalization)
  Sender: FDA-Public Use
  Company Number: None

PATIENT
  Sex: Female

DRUGS (6)
  1. METHOTREXATE [Suspect]
     Indication: GLIOBLASTOMA MULTIFORME
     Dosage: 23 GRAMS IV X 1
     Route: 042
     Dates: start: 20050804
  2. DEXAMETHASONE [Concomitant]
  3. PHENYTOIN [Concomitant]
  4. PHENOBARB [Concomitant]
  5. FAMOTIDINE [Concomitant]
  6. VALIUM [Concomitant]

REACTIONS (12)
  - COMA [None]
  - CYANOSIS [None]
  - HEPATIC FAILURE [None]
  - LETHARGY [None]
  - LIVER DISORDER [None]
  - LOSS OF CONSCIOUSNESS [None]
  - MENTAL IMPAIRMENT [None]
  - NAUSEA [None]
  - PUPIL FIXED [None]
  - TOXIC INDUCED ENCEPHALOPATHY [None]
  - UNRESPONSIVE TO PAIN STIMULI [None]
  - VOMITING [None]
